FAERS Safety Report 7408461-0 (Version None)
Quarter: 2011Q2

REPORT INFORMATION
  Report Type: 
  Country: None (occurrence: None)
  Receive Date: 20110401
  Receipt Date: 20110328
  Transmission Date: 20111010
  Serious: No
  Sender: FDA-Public Use
  Company Number: 2011-00139

PATIENT
  Age: 88 Year
  Sex: Male
  Weight: 68.0396 kg

DRUGS (2)
  1. VITAMINS [Concomitant]
  2. ZICAM COLD REMEDY RAPIDMELTS WITH VITAMIN C [Suspect]
     Dosage: DIRECTED X 4 DAY
     Dates: start: 20110305, end: 20110308

REACTIONS (2)
  - AGEUSIA [None]
  - ANOSMIA [None]
